FAERS Safety Report 17498514 (Version 1)
Quarter: 2020Q1

REPORT INFORMATION
  Report Type: Report from Study
  Country: US (occurrence: US)
  Receive Date: 20200304
  Receipt Date: 20200304
  Transmission Date: 20200409
  Serious: Yes (Hospitalization, Other)
  Sender: FDA-Public Use
  Company Number: US-BAYER-2020-028530

PATIENT
  Age: 25 Year
  Sex: Female
  Weight: 86.17 kg

DRUGS (6)
  1. UPTRAVI [Concomitant]
     Active Substance: SELEXIPAG
     Dosage: UNK
  2. ADEMPAS [Suspect]
     Active Substance: RIOCIGUAT
     Indication: PULMONARY ARTERIAL HYPERTENSION
     Dosage: UNK
     Route: 048
     Dates: start: 20190719
  3. ADEMPAS [Suspect]
     Active Substance: RIOCIGUAT
     Indication: PULMONARY ARTERIAL HYPERTENSION
     Dosage: 1 MG, TID
     Route: 048
  4. ADEMPAS [Suspect]
     Active Substance: RIOCIGUAT
     Indication: PULMONARY ARTERIAL HYPERTENSION
     Dosage: 1 MG, TID
     Route: 048
  5. ELIQUIS [Concomitant]
     Active Substance: APIXABAN
     Dosage: UNK
  6. AMBRISENTAN [Concomitant]
     Active Substance: AMBRISENTAN
     Dosage: UNK

REACTIONS (6)
  - Abdominal pain [None]
  - Gastrointestinal disorder [None]
  - Haemoglobin decreased [None]
  - Gastric ulcer [Not Recovered/Not Resolved]
  - Haematemesis [None]
  - Product dose omission [None]

NARRATIVE: CASE EVENT DATE: 202002
